FAERS Safety Report 23470152 (Version 1)
Quarter: 2024Q1

REPORT INFORMATION
  Report Type: Spontaneous
  Country: IT (occurrence: IT)
  Receive Date: 20240202
  Receipt Date: 20240202
  Transmission Date: 20240410
  Serious: Yes (Hospitalization)
  Sender: FDA-Public Use
  Company Number: IT-SA-2023SA359161

PATIENT
  Age: 61 Year

DRUGS (24)
  1. CARFILZOMIB [Suspect]
     Active Substance: CARFILZOMIB
     Indication: Product used for unknown indication
     Dosage: UNK
     Route: 065
     Dates: start: 20220506
  2. DEXAMETHASONE [Suspect]
     Active Substance: DEXAMETHASONE
     Indication: Product used for unknown indication
     Dosage: UNK
     Route: 065
     Dates: start: 20220506
  3. ISATUXIMAB [Suspect]
     Active Substance: ISATUXIMAB
     Indication: Product used for unknown indication
     Dosage: UNK
     Route: 065
     Dates: start: 20220506
  4. ACYCLOVIR [Concomitant]
     Active Substance: ACYCLOVIR
     Indication: Infection prophylaxis
     Dosage: 400 MG, Q12H (BID)
     Route: 065
     Dates: start: 2019
  5. ACYCLOVIR AKRI [Concomitant]
     Indication: Infection prophylaxis
     Dosage: 400 MG, BID
     Route: 065
     Dates: start: 2019
  6. ALLOPURINOL [Concomitant]
     Active Substance: ALLOPURINOL
     Indication: Hyperuricaemia
     Dosage: 300 MG, QD
     Route: 065
     Dates: start: 202204
  7. BACTRIM [Concomitant]
     Active Substance: SULFAMETHOXAZOLE\TRIMETHOPRIM
     Indication: Infection prophylaxis
     Dosage: 2 DOSAGE FORM, QW
     Route: 065
     Dates: start: 2019
  8. ASPIRIN [Concomitant]
     Active Substance: ASPIRIN
     Indication: Thrombosis
     Dosage: 100 MG, QD
     Route: 065
     Dates: start: 202006
  9. CETIRIZINE [Concomitant]
     Active Substance: CETIRIZINE HYDROCHLORIDE
     Indication: Rash
     Dosage: 10 MG
     Route: 065
     Dates: start: 202211
  10. FENTANYL CITRATE [Concomitant]
     Active Substance: FENTANYL CITRATE
     Indication: Bone pain
     Dosage: UNK (100 MCG/H TO BE REPLACED EVERY 72 HOURS)
     Route: 065
     Dates: start: 2019
  11. EPIVIR [Concomitant]
     Active Substance: LAMIVUDINE
     Indication: Infection prophylaxis
     Dosage: 100 MG, QD
     Route: 065
     Dates: start: 2019
  12. FENTANYL [Concomitant]
     Active Substance: FENTANYL\FENTANYL CITRATE
     Indication: Bone pain
     Dosage: 200 UG, PRN (AS NECESSARY)
     Route: 065
     Dates: start: 202212
  13. FILGRASTIM [Concomitant]
     Active Substance: FILGRASTIM
     Indication: Neutropenia
     Dosage: 30 MG, QW
     Route: 058
     Dates: start: 20230418
  14. LAMIVUDINE [Concomitant]
     Active Substance: LAMIVUDINE
     Indication: Infection prophylaxis
     Dosage: 100 MG, QD
     Route: 065
     Dates: start: 2019
  15. LASIX [Concomitant]
     Active Substance: FUROSEMIDE
     Indication: Cardiovascular event prophylaxis
     Dosage: 25 MG, QD
     Route: 065
     Dates: start: 2023
  16. FUROSEMIDE\RESERPINE [Concomitant]
     Active Substance: FUROSEMIDE\RESERPINE
     Indication: Cardiovascular event prophylaxis
     Dosage: 25 MG, QD
     Route: 065
     Dates: start: 2023
  17. NEBIVOLOL HYDROCHLORIDE [Concomitant]
     Active Substance: NEBIVOLOL HYDROCHLORIDE
     Indication: Cardiovascular event prophylaxis
     Dosage: 0.5 DOSAGE FORM, QD
     Route: 065
     Dates: start: 202211
  18. LORMETAZEPAM [Concomitant]
     Active Substance: LORMETAZEPAM
     Indication: Product used for unknown indication
     Dosage: 10 DRP (GTT DROPS, 1/12 MILLILITRE)
     Route: 065
  19. PANADOL [Concomitant]
     Active Substance: ACETAMINOPHEN
     Indication: Bone pain
     Dosage: 1000 MG, QD
     Route: 065
     Dates: start: 2019
  20. PANTOPRAZOLE [Concomitant]
     Active Substance: PANTOPRAZOLE
     Indication: Gastrointestinal disorder prophylaxis
     Dosage: 20 MG, BID
     Route: 065
     Dates: start: 2019
  21. ACETAMINOPHEN [Concomitant]
     Active Substance: ACETAMINOPHEN
     Indication: Bone pain
     Dosage: 1000 MG, QD
     Route: 065
     Dates: start: 2019
  22. RAMIPRIL [Concomitant]
     Active Substance: RAMIPRIL
     Indication: Cardiovascular event prophylaxis
     Dosage: 5 MG, QD
     Route: 065
     Dates: start: 202205
  23. RIOPAN PLUS [Concomitant]
     Indication: Gastrointestinal disorder
     Dosage: UNK
     Route: 065
     Dates: start: 202303
  24. ALLOPURINOL [Concomitant]
     Active Substance: ALLOPURINOL
     Indication: Hyperuricaemia
     Dosage: 300 MG, QD
     Route: 065
     Dates: start: 202204

REACTIONS (2)
  - Chest pain [Recovered/Resolved]
  - Hypoaesthesia [Recovered/Resolved]

NARRATIVE: CASE EVENT DATE: 20230607
